FAERS Safety Report 8612441-7 (Version None)
Quarter: 2012Q3

REPORT INFORMATION
  Report Type: 
  Country: None (occurrence: None)
  Receive Date: 20120822
  Receipt Date: 20120814
  Transmission Date: 20120928
  Serious: Yes (Other)
  Sender: FDA-Public Use
  Company Number: US-US-EMD SERONO, INC.-7140911

PATIENT
  Sex: Female
  Weight: 86 kg

DRUGS (7)
  1. UNKNOWN MEDICATIONS [Concomitant]
     Indication: PRODUCT USED FOR UNKNOWN INDICATION
  2. PANTOPRAZOLE [Concomitant]
     Indication: COLITIS ULCERATIVE
  3. BACLOFEN [Concomitant]
  4. REBIF [Suspect]
     Route: 058
     Dates: start: 20120801
  5. IMURAN [Concomitant]
     Indication: COLITIS ULCERATIVE
  6. CORTISOL [Concomitant]
     Indication: COLITIS ULCERATIVE
  7. REBIF [Suspect]
     Indication: MULTIPLE SCLEROSIS
     Route: 058
     Dates: start: 20111213, end: 20120601

REACTIONS (3)
  - COLONIC POLYP [None]
  - MUSCLE SPASMS [None]
  - COLITIS ULCERATIVE [None]
